FAERS Safety Report 7229629-2 (Version None)
Quarter: 2011Q1

REPORT INFORMATION
  Report Type: 
  Country: None (occurrence: None)
  Receive Date: 20110117
  Receipt Date: 20110104
  Transmission Date: 20110831
  Serious: Yes (Hospitalization, Other)
  Sender: FDA-Public Use
  Company Number: PHHY2010GB21820

PATIENT
  Sex: Male

DRUGS (4)
  1. DESMOPRESSIN ACETATE [Concomitant]
     Dosage: PRN
  2. PIRENZEPINE [Concomitant]
     Dosage: 25MG
     Route: 048
  3. CLOZARIL [Suspect]
     Indication: SCHIZOPHRENIA
     Dosage: 225MG
     Dates: start: 19940914
  4. VALPROATE SODIUM [Concomitant]
     Dosage: 100MG
     Route: 048

REACTIONS (5)
  - ANKYLOSING SPONDYLITIS [None]
  - RESPIRATORY FAILURE [None]
  - SPINAL DISORDER [None]
  - CHEST DISCOMFORT [None]
  - URINARY TRACT INFECTION [None]
